FAERS Safety Report 9652126 (Version 3)
Quarter: 2013Q4

REPORT INFORMATION
  Report Type: Spontaneous
  Country: JP (occurrence: JP)
  Receive Date: 20131029
  Receipt Date: 20131219
  Transmission Date: 20140711
  Serious: Yes (Hospitalization)
  Sender: FDA-Public Use
  Company Number: JP-AMGEN-JPNSP2013076334

PATIENT
  Age: 78 Year
  Sex: Female
  Weight: 46 kg

DRUGS (9)
  1. PRALIA [Suspect]
     Indication: OSTEOPOROSIS
     Dosage: 60 MG, UNK
     Route: 058
     Dates: start: 20130815
  2. LIVALO [Suspect]
     Indication: PRODUCT USED FOR UNKNOWN INDICATION
     Route: 048
  3. ARTIST [Concomitant]
     Route: 048
  4. FLUITRAN [Concomitant]
     Route: 048
  5. MUCOSTA [Concomitant]
     Dosage: UNK
     Route: 065
  6. PARIET [Concomitant]
     Route: 048
     Dates: start: 20100604
  7. LOXONIN [Concomitant]
     Dosage: UNK
     Route: 065
  8. SELBEX [Concomitant]
     Dosage: UNK
     Route: 065
  9. PURSENNID                          /00142207/ [Concomitant]
     Dosage: UNK
     Route: 065

REACTIONS (4)
  - Rhabdomyolysis [Recovered/Resolved]
  - Hepatic function abnormal [Recovered/Resolved]
  - Loss of consciousness [Recovered/Resolved]
  - Fall [Unknown]
